FAERS Safety Report 4367699-X (Version None)
Quarter: 2004Q2

REPORT INFORMATION
  Report Type: 
  Country: None (occurrence: None)
  Receive Date: 20040526
  Receipt Date: 20040322
  Transmission Date: 20050107
  Serious: Yes (Hospitalization, Other)
  Sender: FDA-Public Use
  Company Number: USA030741601

PATIENT
  Age: 8 Year
  Sex: Male
  Weight: 16 kg

DRUGS (4)
  1. ZYPREXA [Suspect]
     Indication: ATTENTION DEFICIT/HYPERACTIVITY DISORDER
     Dosage: 5 MG/1 DAY
  2. ZYPREXA [Suspect]
     Indication: BIPOLAR DISORDER
     Dosage: 5 MG/1 DAY
  3. TRILEPTAL [Concomitant]
  4. SEROQUEL [Concomitant]

REACTIONS (1)
  - GRAND MAL CONVULSION [None]
